FAERS Safety Report 12238552 (Version 1)
Quarter: 2016Q2

REPORT INFORMATION
  Report Type: Spontaneous
  Country: US (occurrence: US)
  Receive Date: 20160405
  Receipt Date: 20160405
  Transmission Date: 20160815
  Serious: No
  Sender: FDA-Public Use
  Company Number: US-PFIZER INC-2016169610

PATIENT
  Sex: Female

DRUGS (20)
  1. CODEINE PHOSPHATE [Suspect]
     Active Substance: CODEINE PHOSPHATE
     Dosage: UNK
  2. METHADONE HCL [Suspect]
     Active Substance: METHADONE HYDROCHLORIDE
     Dosage: UNK
  3. HUMIRA [Suspect]
     Active Substance: ADALIMUMAB
     Dosage: UNK
  4. MORPHINE [Suspect]
     Active Substance: MORPHINE
     Dosage: UNK
  5. IODINE. [Suspect]
     Active Substance: IODINE
     Dosage: UNK
  6. METHYLPHENIDATE. [Suspect]
     Active Substance: METHYLPHENIDATE
     Dosage: UNK
  7. METOCLOPRAMIDE HCL [Suspect]
     Active Substance: METOCLOPRAMIDE HYDROCHLORIDE
     Dosage: UNK
  8. CODEINE SULFATE. [Suspect]
     Active Substance: CODEINE SULFATE
     Dosage: UNK
  9. KEFLEX [Suspect]
     Active Substance: CEPHALEXIN
     Dosage: UNK
  10. METHADONE [Suspect]
     Active Substance: METHADONE HYDROCHLORIDE
     Dosage: UNK
  11. PROPOXYPHENE. [Suspect]
     Active Substance: PROPOXYPHENE
     Dosage: UNK
  12. RITALIN SR [Suspect]
     Active Substance: METHYLPHENIDATE HYDROCHLORIDE
     Dosage: UNK
  13. MORPHINE SULFATE. [Suspect]
     Active Substance: MORPHINE SULFATE
     Dosage: UNK
  14. ACTEMRA [Suspect]
     Active Substance: TOCILIZUMAB
     Dosage: UNK
  15. CODEINE [Suspect]
     Active Substance: CODEINE
     Dosage: UNK
  16. AMOXICILLIN. [Suspect]
     Active Substance: AMOXICILLIN
     Dosage: UNK
  17. HYPAQUE SODIUM [Suspect]
     Active Substance: DIATRIZOATE SODIUM
     Dosage: UNK
  18. METHYLPHENIDATE HYDROCHLORIDE. [Suspect]
     Active Substance: METHYLPHENIDATE HYDROCHLORIDE
     Dosage: UNK
  19. CEPHALEXIN. [Suspect]
     Active Substance: CEPHALEXIN
     Dosage: UNK
  20. AMBIEN CR [Suspect]
     Active Substance: ZOLPIDEM TARTRATE
     Dosage: UNK

REACTIONS (1)
  - Hypersensitivity [Unknown]
